APPROVED DRUG PRODUCT: LANSOPRAZOLE
Active Ingredient: LANSOPRAZOLE
Strength: 15MG
Dosage Form/Route: CAPSULE, DELAYED REL PELLETS;ORAL
Application: A203957 | Product #001
Applicant: AJANTA PHARMA LTD
Approved: Oct 14, 2016 | RLD: No | RS: No | Type: DISCN